FAERS Safety Report 5834422-9 (Version None)
Quarter: 2008Q3

REPORT INFORMATION
  Report Type: 
  Country: None (occurrence: None)
  Receive Date: 20080805
  Receipt Date: 20080728
  Transmission Date: 20090109
  Serious: Yes (Other)
  Sender: FDA-Public Use
  Company Number: US-ASTRAZENECA-2006UW23613

PATIENT
  Age: 43 Year
  Sex: Female
  Weight: 97.5 kg

DRUGS (1)
  1. SEROQUEL [Suspect]
     Indication: AGORAPHOBIA
     Route: 048
     Dates: start: 20030501

REACTIONS (6)
  - DIABETES MELLITUS [None]
  - GALLBLADDER DISORDER [None]
  - HEPATIC STEATOSIS [None]
  - LIMB DEFORMITY [None]
  - LIVER DISORDER [None]
  - OBESITY [None]
